FAERS Safety Report 9719138 (Version 2)
Quarter: 2013Q4

REPORT INFORMATION
  Report Type: Spontaneous
  Country: CL (occurrence: CL)
  Receive Date: 20131127
  Receipt Date: 20131210
  Transmission Date: 20140711
  Serious: Yes (Other)
  Sender: FDA-Public Use
  Company Number: PHHY2013CL133416

PATIENT
  Age: 54 Year
  Sex: Female

DRUGS (6)
  1. GEMCITABINE [Suspect]
     Indication: BREAST CANCER METASTATIC
     Dosage: 1200 MG, EVERY 3 WEEKS
  2. PREDNISONE [Suspect]
     Indication: RECALL PHENOMENON
  3. TRASTUZUMAB [Suspect]
     Indication: BREAST CANCER METASTATIC
     Dosage: 100 MG EVERY 3 WEEKS
  4. NSAID^S [Suspect]
     Indication: RECALL PHENOMENON
  5. LETROZOLE [Concomitant]
     Indication: BREAST CANCER METASTATIC
  6. BISPHOSPHONATES [Concomitant]

REACTIONS (8)
  - Recall phenomenon [Recovering/Resolving]
  - Dermatitis [Recovering/Resolving]
  - Erythema [Recovering/Resolving]
  - Pain of skin [Recovering/Resolving]
  - Abdominal pain [Recovering/Resolving]
  - Myositis [Recovering/Resolving]
  - Enterocolitis [Recovering/Resolving]
  - Drug effect incomplete [Unknown]
